FAERS Safety Report 4334343-7 (Version None)
Quarter: 2004Q2

REPORT INFORMATION
  Report Type: 
  Country: None (occurrence: None)
  Receive Date: 20040405
  Receipt Date: 20030922
  Transmission Date: 20050107
  Serious: Yes (Hospitalization)
  Sender: FDA-Public Use
  Company Number: 22257

PATIENT
  Age: 61 Year
  Sex: Female

DRUGS (1)
  1. IMIQUIMOD (IMIQUIMOD) [Suspect]
     Indication: PAPILLOMA
     Dosage: (3 IN 1 WEEK (S)) TOPICAL
     Route: 061

REACTIONS (6)
  - APPLICATION SITE IRRITATION [None]
  - APPLICATION SITE PAIN [None]
  - DRUG INEFFECTIVE [None]
  - NEOPLASM RECURRENCE [None]
  - SKIN ULCER [None]
  - SQUAMOUS CELL CARCINOMA [None]
